FAERS Safety Report 21179286 (Version 1)
Quarter: 2022Q3

REPORT INFORMATION
  Report Type: Spontaneous
  Country: CA (occurrence: CA)
  Receive Date: 20220805
  Receipt Date: 20220805
  Transmission Date: 20221027
  Serious: Yes (Other)
  Sender: FDA-Public Use
  Company Number: CA-AstraZeneca-2022A271528

PATIENT
  Age: 55 Year
  Sex: Female

DRUGS (10)
  1. PANTOPRAZOLE [Suspect]
     Active Substance: PANTOPRAZOLE
     Indication: Migraine
     Dosage: 40 MILLIGRAM, BID (OFF LABEL USE)
     Route: 065
  2. FLUOXETINE HYDROCHLORIDE [Suspect]
     Active Substance: FLUOXETINE HYDROCHLORIDE
     Indication: Migraine
     Dosage: 20 MILLIGRAM, OFF LABEL USE
     Route: 065
  3. TOPIRAMATE [Suspect]
     Active Substance: TOPIRAMATE
     Indication: Migraine
     Dosage: UNK, OFF LABEL USE
     Route: 065
  4. CANDESARTAN CILEXETIL [Suspect]
     Active Substance: CANDESARTAN CILEXETIL
     Indication: Migraine
     Dosage: 16 MILLIGRAM, OFF LABEL USE
     Route: 048
  5. CANDESARTAN CILEXETIL [Suspect]
     Active Substance: CANDESARTAN CILEXETIL
     Indication: Blood pressure measurement
     Dosage: 8 MILLIGRAM, OFF LABEL USE
     Route: 048
  6. ERENUMAB-AOOE [Suspect]
     Active Substance: ERENUMAB-AOOE
     Indication: Migraine
     Dosage: 140 MILLIGRAM, MONTHLY, OFF LABEL USE
     Route: 058
  7. FERROUS FUMARATE [Concomitant]
     Active Substance: FERROUS FUMARATE
     Dosage: 300 MILLIGRAM
  8. MODAFINIL [Concomitant]
     Active Substance: MODAFINIL
     Dosage: 100 MILLIGRAM, BID
  9. NAPROXEN [Concomitant]
     Active Substance: NAPROXEN
     Dosage: 500 MILLIGRAM
  10. OSTO-D2 [Concomitant]
     Dosage: 1 DOSAGE FORM, 1/WEEK

REACTIONS (14)
  - Off label use [Unknown]
  - Blood pressure measurement [Unknown]
  - Dysstasia [Unknown]
  - Eye pain [Unknown]
  - Headache [Unknown]
  - Heart rate abnormal [Unknown]
  - Hypertension [Unknown]
  - Hypoaesthesia oral [Unknown]
  - Nausea [Unknown]
  - Pain of skin [Unknown]
  - Photophobia [Unknown]
  - Swelling face [Unknown]
  - Drug intolerance [Unknown]
  - Therapeutic product effect decreased [Unknown]
